FAERS Safety Report 7098816-9 (Version None)
Quarter: 2010Q4

REPORT INFORMATION
  Report Type: 
  Country: None (occurrence: None)
  Receive Date: 20101112
  Receipt Date: 20100923
  Transmission Date: 20110411
  Serious: Yes (Hospitalization)
  Sender: FDA-Public Use
  Company Number: US-GENZYME-CAMP-1001020

PATIENT
  Sex: Male

DRUGS (1)
  1. CAMPATH [Suspect]
     Dosage: 30 MG, UNK
     Route: 065
     Dates: end: 20100903

REACTIONS (2)
  - HOSPITALISATION [None]
  - LABORATORY TEST ABNORMAL [None]
